FAERS Safety Report 5950739-1 (Version None)
Quarter: 2008Q4

REPORT INFORMATION
  Report Type: 
  Country: None (occurrence: None)
  Receive Date: 20081112
  Receipt Date: 20081106
  Transmission Date: 20090506
  Serious: No
  Sender: FDA-Public Use
  Company Number: US-B.I. PHARMACEUTICALS,INC./RIDGEFIELD-2008-BP-03313BP

PATIENT
  Sex: Male

DRUGS (8)
  1. SPIRIVA [Suspect]
     Indication: CHRONIC OBSTRUCTIVE PULMONARY DISEASE
     Dosage: 18MCG
     Route: 055
     Dates: start: 20060101
  2. SPIRIVA [Suspect]
     Indication: EMPHYSEMA
  3. SPIRIVA [Suspect]
     Indication: ASTHMA
  4. ADVAIR DISKUS 100/50 [Concomitant]
  5. PHENOBARBITAL TAB [Concomitant]
  6. DILANTIN [Concomitant]
  7. ALBUTEROL [Concomitant]
  8. PREVACID [Concomitant]

REACTIONS (3)
  - DYSPNOEA [None]
  - INFLUENZA [None]
  - PNEUMONIA [None]
